FAERS Safety Report 18777861 (Version 2)
Quarter: 2021Q1

REPORT INFORMATION
  Report Type: Spontaneous
  Country: US (occurrence: US)
  Receive Date: 20210122
  Receipt Date: 20210122
  Transmission Date: 20210419
  Serious: No
  Sender: FDA-Public Use
  Company Number: 2020SGN03426

PATIENT
  Sex: Female

DRUGS (6)
  1. XELODA [Suspect]
     Active Substance: CAPECITABINE
     Dosage: 2 DF, BID
  2. MIRTAZAPINE. [Suspect]
     Active Substance: MIRTAZAPINE
  3. TUKYSA [Suspect]
     Active Substance: TUCATINIB
     Indication: BREAST CANCER FEMALE
  4. XELODA [Suspect]
     Active Substance: CAPECITABINE
     Indication: BREAST CANCER FEMALE
     Dosage: 3 DF, BID
  5. PROTONIX [Concomitant]
     Active Substance: PANTOPRAZOLE SODIUM
  6. HERCEPTIN [Concomitant]
     Active Substance: TRASTUZUMAB
     Indication: BREAST CANCER FEMALE

REACTIONS (16)
  - Ejection fraction [Unknown]
  - Laboratory test abnormal [Unknown]
  - Emotional disorder [Unknown]
  - Sleep disorder [Unknown]
  - Drug interaction [Unknown]
  - Gastrointestinal sounds abnormal [Unknown]
  - Transfusion [Unknown]
  - Muscle spasms [Unknown]
  - Insomnia [Unknown]
  - Pulmonary mass [Unknown]
  - Skin exfoliation [Recovering/Resolving]
  - Diarrhoea [Unknown]
  - Eye disorder [Unknown]
  - Macular degeneration [Unknown]
  - Constipation [Unknown]
  - Decreased appetite [Unknown]
